FAERS Safety Report 11448896 (Version 1)
Quarter: 2015Q3

REPORT INFORMATION
  Report Type: Report from Study
  Country: JP (occurrence: JP)
  Receive Date: 20150902
  Receipt Date: 20150902
  Transmission Date: 20151125
  Serious: Yes (Hospitalization)
  Sender: FDA-Public Use
  Company Number: JP-EISAI MEDICAL RESEARCH-EC-2015-010130

PATIENT
  Age: 16 Year
  Sex: Male
  Weight: 45 kg

DRUGS (14)
  1. INOVELON [Suspect]
     Active Substance: RUFINAMIDE
     Route: 048
     Dates: start: 20130807, end: 20130827
  2. MYSTAN [Concomitant]
     Active Substance: CLOBAZAM
  3. INTAL [Concomitant]
     Active Substance: CROMOLYN SODIUM
  4. TELEMINSOFT [Concomitant]
  5. INOVELON [Suspect]
     Active Substance: RUFINAMIDE
     Route: 048
     Dates: start: 20130731, end: 20130806
  6. INOVELON [Suspect]
     Active Substance: RUFINAMIDE
     Route: 048
     Dates: start: 20130828, end: 20130910
  7. KEPPRA [Concomitant]
     Active Substance: LEVETIRACETAM
  8. INOVELON [Suspect]
     Active Substance: RUFINAMIDE
     Route: 048
     Dates: start: 20130911, end: 20130924
  9. INOVELON [Suspect]
     Active Substance: RUFINAMIDE
     Route: 048
     Dates: start: 20131009, end: 20150620
  10. MUCOSAL [Concomitant]
  11. INOVELON [Suspect]
     Active Substance: RUFINAMIDE
     Route: 048
     Dates: start: 20130925, end: 20131008
  12. INOVELON [Suspect]
     Active Substance: RUFINAMIDE
     Indication: LENNOX-GASTAUT SYNDROME
     Route: 048
     Dates: start: 20130716, end: 20130730
  13. SELENICA-R [Concomitant]
     Active Substance: SELENIUM
  14. MUCODYNE [Concomitant]
     Active Substance: CARBOCYSTEINE

REACTIONS (1)
  - Agitation [Recovering/Resolving]

NARRATIVE: CASE EVENT DATE: 201503
